FAERS Safety Report 18551384 (Version 2)
Quarter: 2021Q1

REPORT INFORMATION
  Report Type: Report from Study
  Country: BR (occurrence: BR)
  Receive Date: 20201126
  Receipt Date: 20210303
  Transmission Date: 20210419
  Serious: Yes (Hospitalization, Other)
  Sender: FDA-Public Use
  Company Number: NVSC2020BR314952

PATIENT
  Age: 47 Year
  Sex: Female

DRUGS (3)
  1. ENTRESTO [Suspect]
     Active Substance: SACUBITRIL\VALSARTAN
     Indication: CARDIAC FAILURE
     Dosage: UNK
     Route: 065
     Dates: end: 20210216
  2. KISQALI [Suspect]
     Active Substance: RIBOCICLIB
     Indication: BREAST CANCER
     Dosage: UNK
     Route: 065
     Dates: start: 20201004
  3. KISQALI [Suspect]
     Active Substance: RIBOCICLIB
     Dosage: 3 DF, QD
     Route: 065
     Dates: start: 20201014

REACTIONS (11)
  - Pyrexia [Recovered/Resolved]
  - Hypotension [Unknown]
  - Malaise [Not Recovered/Not Resolved]
  - Cardiac failure [Unknown]
  - COVID-19 [Recovered/Resolved]
  - Fatigue [Recovered/Resolved]
  - COVID-19 [Recovered/Resolved]
  - Hepatic mass [Unknown]
  - Tachycardia [Unknown]
  - Heart rate irregular [Unknown]
  - Drug ineffective [Unknown]

NARRATIVE: CASE EVENT DATE: 202011
